FAERS Safety Report 10257567 (Version 1)
Quarter: 2014Q2

REPORT INFORMATION
  Report Type: Report from Study
  Country: US (occurrence: US)
  Receive Date: 20140625
  Receipt Date: 20140625
  Transmission Date: 20141212
  Serious: Yes (Other)
  Sender: FDA-Public Use
  Company Number: PHEH2014US012484

PATIENT
  Sex: Female

DRUGS (1)
  1. GILENYA [Suspect]
     Dosage: 0.5 MG, QD
     Route: 048

REACTIONS (7)
  - Central nervous system lesion [Unknown]
  - Allodynia [Unknown]
  - Post herpetic neuralgia [Unknown]
  - Hand deformity [Unknown]
  - Gait disturbance [Unknown]
  - Scar [Unknown]
  - Herpes zoster [Unknown]
